FAERS Safety Report 21649918 (Version 1)
Quarter: 2022Q4

REPORT INFORMATION
  Report Type: Spontaneous
  Country: CA (occurrence: CA)
  Receive Date: 20221128
  Receipt Date: 20221128
  Transmission Date: 20230113
  Serious: Yes (Life-Threatening, Hospitalization)
  Sender: FDA-Public Use
  Company Number: CA-TEVA-2022-CA-2830525

PATIENT
  Age: 90 Year
  Sex: Male

DRUGS (1)
  1. BISOPROLOL FUMARATE [Suspect]
     Active Substance: BISOPROLOL FUMARATE
     Indication: Product used for unknown indication
     Route: 065

REACTIONS (7)
  - Acute coronary syndrome [Unknown]
  - Acute kidney injury [Unknown]
  - Bradycardia [Unknown]
  - Chronic kidney disease [Unknown]
  - Hypotension [Unknown]
  - Sepsis [Unknown]
  - Heart rate decreased [Unknown]
